FAERS Safety Report 10311348 (Version 2)
Quarter: 2014Q4

REPORT INFORMATION
  Report Type: Report from Study
  Country: CA (occurrence: CA)
  Receive Date: 20140717
  Receipt Date: 20141020
  Transmission Date: 20150528
  Serious: Yes (Hospitalization, Other)
  Sender: FDA-Public Use
  Company Number: CA-BRISTOL-MYERS SQUIBB COMPANY-21199757

PATIENT
  Age: 57 Year
  Sex: Female

DRUGS (13)
  1. SALAGEN [Concomitant]
     Active Substance: PILOCARPINE HYDROCHLORIDE
  2. PLAQUENIL [Concomitant]
     Active Substance: HYDROXYCHLOROQUINE SULFATE
  3. FOLIC ACID. [Concomitant]
     Active Substance: FOLIC ACID
  4. DOMPERIDONE [Concomitant]
     Active Substance: DOMPERIDONE
  5. ADALAT [Concomitant]
     Active Substance: NIFEDIPINE
  6. METHOTREXATE [Concomitant]
     Active Substance: METHOTREXATE
  7. CELEBREX [Concomitant]
     Active Substance: CELECOXIB
  8. VITAMIN D [Concomitant]
     Active Substance: CHOLECALCIFEROL
  9. ORENCIA [Suspect]
     Active Substance: ABATACEPT
     Indication: RHEUMATOID ARTHRITIS
     Dosage: ORENCIA INFUSION OF 11-JUL-2014 WAS CANCELLED
     Route: 042
     Dates: start: 20120301
  10. SYNTHROID [Concomitant]
     Active Substance: LEVOTHYROXINE SODIUM
  11. PANTOLOC [Concomitant]
     Active Substance: PANTOPRAZOLE SODIUM
  12. ORACORT [Concomitant]
     Active Substance: TRIAMCINOLONE ACETONIDE
  13. PRISTIQ EXTENDED RELEASE [Concomitant]
     Active Substance: DESVENLAFAXINE SUCCINATE

REACTIONS (2)
  - Periarthritis [Unknown]
  - Myocardial infarction [Unknown]

NARRATIVE: CASE EVENT DATE: 20140708
